FAERS Safety Report 4363931-7 (Version None)
Quarter: 2004Q2

REPORT INFORMATION
  Report Type: 
  Country: None (occurrence: None)
  Receive Date: 20040521
  Receipt Date: 20040521
  Transmission Date: 20050107
  Serious: Yes (Other)
  Sender: FDA-Public Use
  Company Number: None

PATIENT
  Age: 58 Year
  Sex: Male
  Weight: 71.6683 kg

DRUGS (2)
  1. PRILOSEC [Suspect]
     Indication: GASTROOESOPHAGEAL REFLUX DISEASE
     Dosage: 20 MG EACH DAY
  2. ACEON [Concomitant]

REACTIONS (9)
  - ASTHENIA [None]
  - BALANCE DISORDER [None]
  - DEPRESSION [None]
  - EMOTIONAL DISORDER [None]
  - FEAR [None]
  - FEELING ABNORMAL [None]
  - HEADACHE [None]
  - MEDICATION ERROR [None]
  - PANIC ATTACK [None]
